FAERS Safety Report 13987147 (Version 6)
Quarter: 2018Q1

REPORT INFORMATION
  Report Type: Report from Study
  Country: US (occurrence: US)
  Receive Date: 20170919
  Receipt Date: 20180205
  Transmission Date: 20180508
  Serious: Yes (Other)
  Sender: FDA-Public Use
  Company Number: PHEH2017US029403

PATIENT
  Sex: Male
  Weight: 129 kg

DRUGS (4)
  1. GLEEVEC [Suspect]
     Active Substance: IMATINIB MESYLATE
     Indication: PRODUCT USED FOR UNKNOWN INDICATION
     Dosage: 400 MG, QD
     Route: 048
     Dates: start: 20170106
  2. OXYCODONE [Concomitant]
     Active Substance: OXYCODONE
     Indication: PRODUCT USED FOR UNKNOWN INDICATION
     Route: 065
  3. XANAX [Concomitant]
     Active Substance: ALPRAZOLAM
     Indication: PRODUCT USED FOR UNKNOWN INDICATION
     Route: 065
  4. METHADONE [Concomitant]
     Active Substance: METHADONE HYDROCHLORIDE
     Indication: PRODUCT USED FOR UNKNOWN INDICATION
     Route: 065

REACTIONS (11)
  - Intervertebral disc protrusion [Unknown]
  - Abdominal distension [Not Recovered/Not Resolved]
  - Pain [Unknown]
  - Dysarthria [Unknown]
  - Cyst [Unknown]
  - Neoplasm malignant [Unknown]
  - Swelling [Unknown]
  - Malaise [Unknown]
  - Somnolence [Unknown]
  - Back injury [Unknown]
  - Abdominal pain upper [Not Recovered/Not Resolved]
